FAERS Safety Report 19251205 (Version 1)
Quarter: 2021Q2

REPORT INFORMATION
  Report Type: Other
  Country: US (occurrence: US)
  Receive Date: 20210512
  Receipt Date: 20210512
  Transmission Date: 20210717
  Serious: Yes (Other)
  Sender: FDA-Public Use
  Company Number: US-INTERCEPT-PM2021001472

PATIENT
  Sex: Female

DRUGS (3)
  1. OCALIVA [Suspect]
     Active Substance: OBETICHOLIC ACID
     Indication: PRIMARY BILIARY CHOLANGITIS
     Dosage: 5 MILLIGRAM, QD
     Route: 048
     Dates: start: 20180720
  2. OCALIVA [Suspect]
     Active Substance: OBETICHOLIC ACID
     Dosage: 5 MILLIGRAM, QD
     Route: 048
     Dates: start: 20180720
  3. OTEZLA [Concomitant]
     Active Substance: APREMILAST

REACTIONS (6)
  - Unevaluable event [Unknown]
  - Chronic obstructive pulmonary disease [Unknown]
  - Pulmonary congestion [Unknown]
  - Malaise [Unknown]
  - Liver disorder [Unknown]
  - Fatigue [Unknown]
